FAERS Safety Report 16712510 (Version 1)
Quarter: 2019Q3

REPORT INFORMATION
  Report Type: Spontaneous
  Country: CA (occurrence: CA)
  Receive Date: 20190816
  Receipt Date: 20190816
  Transmission Date: 20191004
  Serious: Yes (Hospitalization, Other)
  Sender: FDA-Public Use
  Company Number: CA-JAZZ-2019-CA-011238

PATIENT

DRUGS (3)
  1. MORPHINE [Suspect]
     Active Substance: MORPHINE
     Indication: PAIN
  2. XYREM [Suspect]
     Active Substance: SODIUM OXYBATE
     Dosage: 3.75 G, UNK
     Route: 048
  3. XYREM [Suspect]
     Active Substance: SODIUM OXYBATE
     Indication: CATAPLEXY
     Dosage: 3 G, UNK
     Route: 048

REACTIONS (5)
  - Nerve compression [Not Recovered/Not Resolved]
  - Enuresis [Not Recovered/Not Resolved]
  - Cystitis [Not Recovered/Not Resolved]
  - Spinal operation [Not Recovered/Not Resolved]
  - Product dose omission [Unknown]
